FAERS Safety Report 5635661-2 (Version None)
Quarter: 2008Q1

REPORT INFORMATION
  Report Type: 
  Country: None (occurrence: None)
  Receive Date: 20080219
  Receipt Date: 20080207
  Transmission Date: 20080703
  Serious: Yes (Hospitalization)
  Sender: FDA-Public Use
  Company Number: 062-C5013-07080966

PATIENT
  Age: 54 Year
  Sex: Female

DRUGS (8)
  1. CC-5013 (LENALIDOMIDE) (CAPSULES) [Suspect]
     Indication: MULTIPLE MYELOMA
     Dosage: 25 MG, DAILY, ORAL
     Route: 048
     Dates: start: 20070514, end: 20070610
  2. DEXAMETHASONE TAB [Suspect]
     Indication: MULTIPLE MYELOMA
     Dosage: 40 MG, ORAL; 8 MG, 1X
     Route: 048
     Dates: start: 20070514, end: 20070610
  3. DEXAMETHASONE TAB [Suspect]
     Indication: MULTIPLE MYELOMA
     Dosage: 40 MG, ORAL; 8 MG, 1X
     Route: 048
     Dates: start: 20070612, end: 20070612
  4. ACYCLOVIR [Concomitant]
  5. TRILEPTAL [Concomitant]
  6. REKAWAN (POTASSIUM CHLORIDE) [Concomitant]
  7. PANTOPRAZOLE SODIUM [Concomitant]
  8. MG VERLA (MAGNESIUM HYDROGEN ASPARTATE) (TABLETS) [Concomitant]

REACTIONS (5)
  - FACTOR VIII DEFICIENCY [None]
  - OESOPHAGITIS [None]
  - ORAL HERPES [None]
  - OSTEOCHONDROSIS [None]
  - SPONDYLOLISTHESIS [None]
